FAERS Safety Report 13668771 (Version 1)
Quarter: 2017Q2

REPORT INFORMATION
  Report Type: Spontaneous
  Country: US (occurrence: US)
  Receive Date: 20170620
  Receipt Date: 20170620
  Transmission Date: 20170830
  Serious: No
  Sender: FDA-Public Use
  Company Number: None

PATIENT
  Age: 92 Year
  Sex: Female
  Weight: 46.31 kg

DRUGS (14)
  1. CALTRATE WITH VITAMIN D [Suspect]
     Active Substance: CALCIUM CARBONATE\CHOLECALCIFEROL
  2. LUTEIN [Concomitant]
     Active Substance: LUTEIN
  3. AMOXICILLIN 500MG CAPSULES [Suspect]
     Active Substance: AMOXICILLIN
     Indication: DENTAL OPERATION
     Dates: start: 20170111
  4. L-THYROXINE (SYNTHROID) [Concomitant]
  5. LOSARTAN AND HYDROCHLOROTHIAZIDE [Concomitant]
     Active Substance: HYDROCHLOROTHIAZIDE\LOSARTAN POTASSIUM
  6. SUPER B COMPLEX [Concomitant]
     Active Substance: CYANOCOBALAMIN\DEXPANTHENOL\NIACINAMIDE\PYRIDOXINE HYDROCHLORIDE\RIBOFLAVIN 5^-PHOSPHATE SODIUM\THIAMINE HYDROCHLORIDE\VITAMIN B COMPLEX
  7. PROBIOTICS [Concomitant]
     Active Substance: PROBIOTICS NOS
  8. SIMVASTATIN. [Concomitant]
     Active Substance: SIMVASTATIN
  9. WARFARIN [Concomitant]
     Active Substance: WARFARIN
  10. ONE-A-DAY NOS [Concomitant]
     Active Substance: MINERALS\VITAMINS
  11. OSTEO BIFLEX [Concomitant]
     Active Substance: CHONDROITIN SULFATE A\GLUCOSAMINE
  12. ESTER C [Concomitant]
  13. ZEAXANTHIN [Concomitant]
     Active Substance: ZEAXANTHIN
  14. BIOTIN [Concomitant]
     Active Substance: BIOTIN

REACTIONS (5)
  - Loss of consciousness [None]
  - Dizziness [None]
  - Head injury [None]
  - Contusion [None]
  - Diarrhoea [None]

NARRATIVE: CASE EVENT DATE: 20170111
